FAERS Safety Report 9507468 (Version 2)
Quarter: 2014Q1

REPORT INFORMATION
  Report Type: Spontaneous
  Country: US (occurrence: None)
  Receive Date: 20130305
  Receipt Date: 20140306
  Transmission Date: 20141002
  Serious: Yes (Other)
  Sender: FDA-Public Use
  Company Number: 163-21880-12111211

PATIENT
  Age: 64 Year
  Sex: Male
  Weight: 110.68 kg

DRUGS (23)
  1. REVLIMID [Suspect]
     Indication: PLASMA CELL MYELOMA
     Route: 048
     Dates: start: 20120319, end: 201203
  2. ADVAIR DISKUS [Concomitant]
  3. ASPIRIN (ACETYLSALICYLIC ACID) [Concomitant]
  4. CENTRUM SILVER [Concomitant]
  5. CO Q-10 (UBIDECARENONE) [Concomitant]
  6. DOCUSATE SODIUM [Concomitant]
  7. FENOFIBRATE [Concomitant]
  8. FINASTERIDE (FINASTERIDE) [Concomitant]
  9. FISH OIL (FISH OIL) [Concomitant]
  10. GABAPENTIN (GABAPENTIN) [Concomitant]
  11. LIPITOR (ATORVASTATIN) [Concomitant]
  12. TYLENOL (PARACETAMOL) [Concomitant]
  13. MIRALAX (MACROGOL) [Concomitant]
  14. ULTRAM (TRAMADOL HYDROCHLORIDE) [Concomitant]
  15. B COMPLEX (BECOSYM FORTE) [Concomitant]
  16. CLARITAN (LORATADINE) [Concomitant]
  17. PROAIR (FLUTICASONE) [Concomitant]
  18. VALIUM (DIAZEPAM) [Concomitant]
  19. LORTAB (VICODIN) [Concomitant]
  20. VERAPAMIL [Concomitant]
  21. DIOVAN (VALSARTAN) [Concomitant]
  22. MAGNESIUM [Concomitant]
  23. DSS [Concomitant]

REACTIONS (3)
  - Bone marrow failure [None]
  - Rash generalised [None]
  - Dry skin [None]
